FAERS Safety Report 8588286-3 (Version None)
Quarter: 2012Q3

REPORT INFORMATION
  Report Type: 
  Country: None (occurrence: None)
  Receive Date: 20120813
  Receipt Date: 20120730
  Transmission Date: 20120928
  Serious: Yes (Other)
  Sender: FDA-Public Use
  Company Number: US-ELI_LILLY_AND_COMPANY-US201205008442

PATIENT
  Age: 58 Year
  Sex: Female
  Weight: 113.38 kg

DRUGS (10)
  1. CYMBALTA [Suspect]
     Dosage: 90 MG, QD
  2. CYMBALTA [Suspect]
     Dosage: 90 MG, QD
  3. ATENOLOL [Concomitant]
     Dosage: UNK, UNKNOWN
  4. MIRTAZAPINE [Concomitant]
     Dosage: UNK, UNKNOWN
  5. XANAX [Concomitant]
     Dosage: UNK, UNKNOWN
  6. LORAZEPAM [Concomitant]
     Dosage: UNK, UNKNOWN
  7. BENTYL [Concomitant]
     Dosage: UNK, UNKNOWN
  8. REMERON [Concomitant]
     Dosage: UNK, UNKNOWN
  9. CYMBALTA [Suspect]
     Dosage: 120 MG, QD
  10. CYMBALTA [Suspect]
     Indication: MAJOR DEPRESSION
     Dosage: 60 MG, BID
     Route: 048
     Dates: start: 20070101, end: 20120101

REACTIONS (4)
  - UMBILICAL HAEMORRHAGE [None]
  - EAR INJURY [None]
  - DYSFUNCTIONAL UTERINE BLEEDING [None]
  - SKIN HAEMORRHAGE [None]
